FAERS Safety Report 9508747 (Version 1)
Quarter: 2013Q1

REPORT INFORMATION
  Report Type: Spontaneous
  Country: US (occurrence: None)
  Receive Date: 20130305
  Receipt Date: 20130305
  Transmission Date: 20140127
  Serious: Yes (Other)
  Sender: FDA-Public Use
  Company Number: 163-21880-12090949

PATIENT
  Age: 84 Year
  Sex: Female
  Weight: 56.7 kg

DRUGS (2)
  1. REVLIMID [Suspect]
     Indication: PLASMA CELL MYELOMA
     Dosage: 10 MG, 21 IN 28 D, PO?TEMPORARILY INTERRUPTED
     Route: 048
     Dates: start: 20120517
  2. FONDAPARINUX (FONDAPARINUX) (7.5 MILLIGRAM, INJECTION) [Suspect]
     Indication: PRODUCT USED FOR UNKNOWN INDICATION
     Dosage: 7.5 MG/0.6ML, UNDER THE SKIN DAILY, IV
     Route: 042
     Dates: start: 20120517

REACTIONS (2)
  - Gastrointestinal disorder [None]
  - Diarrhoea [None]
